FAERS Safety Report 10731892 (Version 1)
Quarter: 2015Q1

REPORT INFORMATION
  Report Type: Spontaneous
  Country: US (occurrence: None)
  Receive Date: 20150120
  Receipt Date: 20150120
  Transmission Date: 20150721
  Serious: Yes (Death)
  Sender: FDA-Public Use
  Company Number: 2015010115

PATIENT
  Age: 42 Year
  Sex: Female

DRUGS (9)
  1. CARISOPRODOL (CARISOPRODOL) [Suspect]
     Active Substance: CARISOPRODOL
  2. AMPHETAMINE (AMPHETAMINE) [Suspect]
     Active Substance: AMPHETAMINE
  3. BENZODIAZEPINE (BENZODIAZEPINE) [Suspect]
     Active Substance: UNSPECIFIED INGREDIENT
  4. OPIOID (OPIOID) [Suspect]
     Active Substance: UNSPECIFIED INGREDIENT
  5. AMPHETAMINE\DEXTROAMPHETAMINE [Suspect]
     Active Substance: AMPHETAMINE\DEXTROAMPHETAMINE
  6. CHLORAL HYDRATE (CHLORAL HYDRATE) [Suspect]
     Active Substance: CHLORAL HYDRATE
  7. AMITRIPTYLINE (AMITRIPTYLINE) [Suspect]
     Active Substance: AMITRIPTYLINE
  8. ETHANOL (ETHANOL) [Suspect]
     Active Substance: ALCOHOL
  9. CITALOPRAM (CITALOPRAM) [Suspect]
     Active Substance: CITALOPRAM HYDROBROMIDE

REACTIONS (2)
  - Respiratory arrest [None]
  - Cardiac arrest [None]

NARRATIVE: CASE EVENT DATE: 2013
